FAERS Safety Report 10348075 (Version 1)
Quarter: 2014Q3

REPORT INFORMATION
  Report Type: Spontaneous
  Country: CN (occurrence: CN)
  Receive Date: 20140729
  Receipt Date: 20140729
  Transmission Date: 20150326
  Serious: Yes (Other)
  Sender: FDA-Public Use
  Company Number: PHHY2014CN091634

PATIENT
  Age: 62 Year
  Sex: Male

DRUGS (2)
  1. PRANOPROFEN [Concomitant]
     Active Substance: PRANOPROFEN
     Dosage: UNK UKN, UNK
     Dates: start: 20140719
  2. LOTENSIN [Suspect]
     Active Substance: BENAZEPRIL HYDROCHLORIDE
     Indication: HYPERTENSION
     Dosage: 10 MG, QD
     Route: 048
     Dates: start: 201312

REACTIONS (2)
  - Skin irritation [Recovering/Resolving]
  - Anaphylactic reaction [Unknown]

NARRATIVE: CASE EVENT DATE: 20140720
